FAERS Safety Report 4402346-X (Version None)
Quarter: 2004Q3

REPORT INFORMATION
  Report Type: 
  Country: None (occurrence: None)
  Receive Date: 20040715
  Receipt Date: 20040702
  Transmission Date: 20050211
  Serious: Yes (Hospitalization)
  Sender: FDA-Public Use
  Company Number: HQWYE903207JUL04

PATIENT
  Age: 66 Year
  Sex: Female

DRUGS (2)
  1. RAPAMUNE [Suspect]
     Indication: RENAL TRANSPLANT
     Dosage: ORAL
     Route: 048
     Dates: start: 20040701
  2. TACROLIMUS (TACROLIMUS) [Concomitant]

REACTIONS (1)
  - CONVULSION [None]
